FAERS Safety Report 21125533 (Version 1)
Quarter: 2022Q3

REPORT INFORMATION
  Report Type: Spontaneous
  Country: US (occurrence: None)
  Receive Date: 20220722
  Receipt Date: 20220722
  Transmission Date: 20221027
  Serious: Yes (Life-Threatening, Hospitalization)
  Sender: FDA-Public Use
  Company Number: None

PATIENT
  Age: 69 Year
  Sex: Male
  Weight: 81.4 kg

DRUGS (9)
  1. ADALIMUMAB [Suspect]
     Active Substance: ADALIMUMAB
     Indication: Rheumatoid arthritis
     Dosage: FREQUENCY : WEEKLY;?
     Route: 058
  2. APIXABAN [Concomitant]
     Active Substance: APIXABAN
  3. DILTIAZEM [Concomitant]
     Active Substance: DILTIAZEM
  4. FUROSEMIDE [Concomitant]
     Active Substance: FUROSEMIDE
  5. GABAPENTIN [Concomitant]
     Active Substance: GABAPENTIN
  6. LOSARTAN [Concomitant]
     Active Substance: LOSARTAN
  7. LOVASTATIN [Concomitant]
     Active Substance: LOVASTATIN
  8. METOPROLOL TARTRATE [Concomitant]
     Active Substance: METOPROLOL TARTRATE
  9. PREDNISONE [Concomitant]
     Active Substance: PREDNISONE

REACTIONS (7)
  - B-cell lymphoma [None]
  - Retroperitoneal mass [None]
  - Lymphadenopathy [None]
  - Abdominal distension [None]
  - Hypophagia [None]
  - Peripheral swelling [None]
  - Monoclonal gammopathy [None]

NARRATIVE: CASE EVENT DATE: 20220624
